FAERS Safety Report 8807723 (Version 2)
Quarter: 2013Q1

REPORT INFORMATION
  Report Type: Spontaneous
  Country: US (occurrence: US)
  Receive Date: 20120925
  Receipt Date: 20130327
  Transmission Date: 20140127
  Serious: No
  Sender: FDA-Public Use
  Company Number: US-BIOGENIDEC-2012BI038057

PATIENT
  Age: 58 Year
  Sex: Female

DRUGS (2)
  1. AVONEX [Suspect]
     Indication: MULTIPLE SCLEROSIS
     Route: 030
     Dates: start: 20020221
  2. DIABETES MEDICATION (NOS) [Concomitant]
     Indication: DIABETES MELLITUS

REACTIONS (2)
  - Diabetes mellitus [Recovered/Resolved]
  - Balance disorder [Recovered/Resolved]
